FAERS Safety Report 24955475 (Version 2)
Quarter: 2025Q1

REPORT INFORMATION
  Report Type: Spontaneous
  Country: US (occurrence: US)
  Receive Date: 20250211
  Receipt Date: 20250226
  Transmission Date: 20250409
  Serious: No
  Sender: BAYER HEALTHCARE PHARMACEUTICALS INC.
  Company Number: US-BAYER-2025A016725

PATIENT
  Age: 20 Year
  Sex: Female

DRUGS (1)
  1. MIRENA [Suspect]
     Active Substance: LEVONORGESTREL
     Indication: Intrauterine contraception
     Dosage: 20?G/DAY
     Route: 015
     Dates: start: 202410, end: 20250130

REACTIONS (4)
  - Device dislocation [Recovered/Resolved]
  - Genital haemorrhage [Not Recovered/Not Resolved]
  - Dysmenorrhoea [None]
  - Ovarian cyst [None]

NARRATIVE: CASE EVENT DATE: 20241001
